FAERS Safety Report 9976431 (Version 1)
Quarter: 2014Q1

REPORT INFORMATION
  Report Type: Report from Study
  Country: US (occurrence: US)
  Receive Date: 20140306
  Receipt Date: 20140306
  Transmission Date: 20141002
  Serious: No
  Sender: FDA-Public Use
  Company Number: US-ABBVIE-13P-163-1166537-00

PATIENT
  Sex: Female
  Weight: 61.29 kg

DRUGS (9)
  1. HUMIRA [Suspect]
     Indication: ANKYLOSING SPONDYLITIS
     Dates: start: 201307
  2. HUMIRA [Suspect]
     Indication: BEHCET^S SYNDROME
  3. LAMICTAL [Concomitant]
     Indication: CONVULSION
  4. METOPROLOL [Concomitant]
     Indication: ATRIAL FIBRILLATION
  5. CYMBALTA [Concomitant]
     Indication: NEUROPATHY PERIPHERAL
  6. AMLODIPINE [Concomitant]
     Indication: ATRIAL FIBRILLATION
  7. GABAPENTIN [Concomitant]
     Indication: CONVULSION
  8. PROMETHAZINE [Concomitant]
     Indication: NAUSEA
  9. IMURAN [Concomitant]
     Indication: IMMUNOSUPPRESSANT DRUG THERAPY

REACTIONS (6)
  - Off label use [Unknown]
  - Behcet^s syndrome [Not Recovered/Not Resolved]
  - Gastrointestinal hypermotility [Not Recovered/Not Resolved]
  - Behcet^s syndrome [Not Recovered/Not Resolved]
  - Ankylosing spondylitis [Not Recovered/Not Resolved]
  - Drug ineffective [Not Recovered/Not Resolved]
